FAERS Safety Report 14445164 (Version 5)
Quarter: 2019Q1

REPORT INFORMATION
  Report Type: Spontaneous
  Country: US (occurrence: US)
  Receive Date: 20180126
  Receipt Date: 20190218
  Transmission Date: 20190417
  Serious: No
  Sender: FDA-Public Use
  Company Number: US-PFIZER INC-2018033255

PATIENT
  Age: 67 Year
  Sex: Male
  Weight: 82.5 kg

DRUGS (2)
  1. XELJANZ XR [Suspect]
     Active Substance: TOFACITINIB CITRATE
     Indication: RHEUMATOID ARTHRITIS
     Dosage: 11 MG, DAILY
     Route: 048
     Dates: start: 201801
  2. FLUOROURACIL. [Concomitant]
     Active Substance: FLUOROURACIL
     Indication: PRECANCEROUS CELLS PRESENT
     Dosage: UNK
     Dates: start: 201804

REACTIONS (5)
  - Blood cholesterol increased [Unknown]
  - Acne [Not Recovered/Not Resolved]
  - Rash [Unknown]
  - Rhinorrhoea [Recovered/Resolved]
  - Rash macular [Recovering/Resolving]

NARRATIVE: CASE EVENT DATE: 2018
